FAERS Safety Report 4269215-X (Version None)
Quarter: 2004Q1

REPORT INFORMATION
  Report Type: 
  Country: None (occurrence: None)
  Receive Date: 20040109
  Receipt Date: 20010821
  Transmission Date: 20041129
  Serious: Yes (Hospitalization)
  Sender: FDA-Public Use
  Company Number: EM2001-1037

PATIENT
  Age: 56 Year
  Sex: Male

DRUGS (8)
  1. PROLEUKIN [Suspect]
     Indication: HIV INFECTION
     Dosage: 7.5 MIU, BID, SUBCUTAN.
     Route: 058
     Dates: start: 20010409, end: 20010413
  2. AZT [Suspect]
     Indication: HIV INFECTION
     Dates: start: 19950101
  3. NEVIRAPINE (NEVIRAPINE) [Concomitant]
  4. LAMIVUDINE (LAMIVUDINE) [Concomitant]
  5. STAVUDINE (STAVUDINE) [Concomitant]
  6. GLYBURIDE [Concomitant]
  7. METFORMIN HCL [Concomitant]
  8. ASPIRIN [Concomitant]

REACTIONS (7)
  - ANAEMIA MACROCYTIC [None]
  - DYSURIA [None]
  - LYMPHADENOPATHY [None]
  - MALAISE [None]
  - MEAN CELL VOLUME INCREASED [None]
  - PYREXIA [None]
  - SPLENOMEGALY [None]
